FAERS Safety Report 4833400-6 (Version None)
Quarter: 2005Q4

REPORT INFORMATION
  Report Type: 
  Country: None (occurrence: None)
  Receive Date: 20051117
  Receipt Date: 20051104
  Transmission Date: 20060501
  Serious: Yes (Hospitalization, Other)
  Sender: FDA-Public Use
  Company Number: 218408

PATIENT
  Age: 38 Year
  Sex: Female
  Weight: 108 kg

DRUGS (18)
  1. MABTHERA (RITUXIMAB) CONC FOR SOLUTION FOR INFUSION [Suspect]
     Indication: LYMPHOMA
     Dosage: SEE IMAGE
     Route: 042
     Dates: start: 20050408, end: 20050408
  2. MABTHERA (RITUXIMAB) CONC FOR SOLUTION FOR INFUSION [Suspect]
     Indication: LYMPHOMA
     Dosage: SEE IMAGE
     Route: 042
     Dates: start: 20050512, end: 20050823
  3. CYCLOPHOSPHAMIDE [Suspect]
     Indication: LYMPHOMA
     Dosage: SEE IMAGE
     Dates: start: 20050408, end: 20050408
  4. CYCLOPHOSPHAMIDE [Suspect]
     Indication: LYMPHOMA
     Dosage: SEE IMAGE
     Dates: start: 20050512, end: 20050823
  5. ETOPOSIDE [Suspect]
     Indication: LYMPHOMA
     Dosage: 210 MG, 1/MONTH, INTRAVENOUS
     Route: 042
     Dates: start: 20050408, end: 20050823
  6. ARANESP [Suspect]
     Indication: HAEMOLYTIC ANAEMIA
     Dosage: 150 UG, 1/WEEK, SUBCUTANEOUS
     Route: 058
     Dates: end: 20051005
  7. DOXORUBICIN HYDROCHLORIDE [Suspect]
     Indication: LYMPHOMA
     Dosage: SEE IMAGE
     Route: 042
     Dates: start: 20050408, end: 20050408
  8. DOXORUBICIN HYDROCHLORIDE [Suspect]
     Indication: LYMPHOMA
     Dosage: SEE IMAGE
     Route: 042
     Dates: start: 20050512, end: 20050823
  9. LUTENYL (NOMEGESTROL ACETATE) [Concomitant]
  10. SOLUPRED (PREDNISOLONE) [Concomitant]
  11. ROFERON-A [Concomitant]
  12. DI-ANTALVIC (ACETAMINOPHEN, PROPOXYPHENE HYDROCHLORIDE) [Concomitant]
  13. OMEPRAZOLE [Concomitant]
  14. PRIMPERAN ELIXIR [Concomitant]
  15. PAROXETINE HYDROCHLORIDE [Concomitant]
  16. TARDYFERON B9 (FOLIC ACID, FERROUS SULFATE, MUCOPROTEOSE) [Concomitant]
  17. FLUCONAZOLE [Concomitant]
  18. FLAGYL [Concomitant]

REACTIONS (11)
  - BEDRIDDEN [None]
  - CYANOSIS [None]
  - DIARRHOEA INFECTIOUS [None]
  - GROIN PAIN [None]
  - ORAL CANDIDIASIS [None]
  - PAIN IN EXTREMITY [None]
  - PHLEBITIS [None]
  - PULMONARY EMBOLISM [None]
  - STAPHYLOCOCCAL SEPSIS [None]
  - THROMBOSIS [None]
  - VASCULITIS [None]
